FAERS Safety Report 9460855 (Version 1)
Quarter: 2013Q3

REPORT INFORMATION
  Report Type: Spontaneous
  Country: US (occurrence: US)
  Receive Date: 20130816
  Receipt Date: 20130816
  Transmission Date: 20140515
  Serious: Yes (Other)
  Sender: FDA-Public Use
  Company Number: US-JNJFOC-20130801112

PATIENT
  Sex: 0

DRUGS (2)
  1. ZYRTEC-D [Suspect]
     Route: 065
  2. ZYRTEC-D [Suspect]
     Indication: SEASONAL ALLERGY
     Route: 065

REACTIONS (4)
  - Depression [Unknown]
  - Depressed mood [Unknown]
  - Dry eye [Unknown]
  - Dry mouth [Unknown]
